FAERS Safety Report 12484047 (Version 1)
Quarter: 2016Q2

REPORT INFORMATION
  Report Type: Spontaneous
  Country: US (occurrence: None)
  Receive Date: 20160620
  Receipt Date: 20160620
  Transmission Date: 20160815
  Serious: No
  Sender: FDA-Public Use
  Company Number: None

PATIENT
  Age: 54 Year
  Sex: Male

DRUGS (1)
  1. HUMIRA [Suspect]
     Active Substance: ADALIMUMAB
     Indication: PSORIASIS
     Route: 058

REACTIONS (6)
  - Epstein-Barr virus infection [None]
  - Pain [None]
  - Headache [None]
  - Fatigue [None]
  - Asthenia [None]
  - Immunosuppression [None]

NARRATIVE: CASE EVENT DATE: 20160415
